FAERS Safety Report 24730099 (Version 1)
Quarter: 2024Q4

REPORT INFORMATION
  Report Type: Spontaneous
  Country: FR (occurrence: FR)
  Receive Date: 20241213
  Receipt Date: 20241213
  Transmission Date: 20250114
  Serious: Yes (Other)
  Sender: AUROBINDO
  Company Number: FR-AFSSAPS-MP2024001763

PATIENT
  Age: 52 Year
  Sex: Female

DRUGS (1)
  1. PRAMIPEXOLE [Suspect]
     Active Substance: PRAMIPEXOLE\PRAMIPEXOLE DIHYDROCHLORIDE
     Indication: Restless legs syndrome
     Dosage: 0.36 MILLIGRAM, ONCE A DAY
     Route: 048
     Dates: start: 202402, end: 202407

REACTIONS (1)
  - Hypomania [Recovered/Resolved with Sequelae]

NARRATIVE: CASE EVENT DATE: 20240501
